FAERS Safety Report 18516196 (Version 1)
Quarter: 2020Q4

REPORT INFORMATION
  Report Type: Spontaneous
  Country: US (occurrence: US)
  Receive Date: 20201118
  Receipt Date: 20201118
  Transmission Date: 20210114
  Serious: Yes (Other)
  Sender: FDA-Public Use
  Company Number: NVSC2020US306649

PATIENT
  Age: 20 Year
  Sex: Male

DRUGS (2)
  1. LAPATINIB [Suspect]
     Active Substance: LAPATINIB
     Indication: PROLACTIN-PRODUCING PITUITARY TUMOUR
     Dosage: 1250 MG, QD (SINGLE ORAL DOSE OF FIVE 250-MG TABLETS ONCE DAILY)
     Route: 048
  2. CABERGOLINE. [Concomitant]
     Active Substance: CABERGOLINE
     Indication: PROLACTIN-PRODUCING PITUITARY TUMOUR
     Dosage: 6 MG, QW
     Route: 065

REACTIONS (5)
  - Neoplasm progression [Unknown]
  - Bradycardia [Unknown]
  - Product use in unapproved indication [Unknown]
  - Rash [Unknown]
  - Prolactin-producing pituitary tumour [Unknown]
